FAERS Safety Report 25540654 (Version 1)
Quarter: 2025Q3

REPORT INFORMATION
  Report Type: Spontaneous
  Country: US (occurrence: US)
  Receive Date: 20250710
  Receipt Date: 20250710
  Transmission Date: 20251020
  Serious: No
  Sender: TRAVERE THERAPEUTICS
  Company Number: US-TRAVERE-2025TVT01053

PATIENT
  Age: 50 Year
  Sex: Male

DRUGS (1)
  1. FILSPARI [Suspect]
     Active Substance: SPARSENTAN
     Indication: Product used for unknown indication
     Route: 048

REACTIONS (5)
  - Hypotension [Unknown]
  - Muscle spasms [Unknown]
  - Dyspnoea [Unknown]
  - Palpitations [Unknown]
  - Urine protein/creatinine ratio decreased [Unknown]
